FAERS Safety Report 5811695-X (Version None)
Quarter: 2008Q3

REPORT INFORMATION
  Report Type: 
  Country: None (occurrence: None)
  Receive Date: 20080716
  Receipt Date: 20080710
  Transmission Date: 20090109
  Serious: Yes (Congenital Anomaly)
  Sender: FDA-Public Use
  Company Number: A0723728A

PATIENT
  Sex: Female
  Weight: 2.8 kg

DRUGS (1)
  1. PAXIL [Suspect]
     Dosage: 20MG PER DAY

REACTIONS (3)
  - MATERNAL DRUGS AFFECTING FOETUS [None]
  - MULTIPLE CONGENITAL ABNORMALITIES [None]
  - VENTRICULAR SEPTAL DEFECT [None]
